FAERS Safety Report 7426992-4 (Version None)
Quarter: 2011Q2

REPORT INFORMATION
  Report Type: 
  Country: None (occurrence: None)
  Receive Date: 20110420
  Receipt Date: 20110413
  Transmission Date: 20111010
  Serious: Yes (Hospitalization)
  Sender: FDA-Public Use
  Company Number: US-MEDIMMUNE-MEDI-0012441

PATIENT
  Sex: Male

DRUGS (6)
  1. QVAR 40 [Concomitant]
  2. VENTALIN [Concomitant]
  3. ZANTAC [Concomitant]
  4. SYNAGIS [Suspect]
     Dates: start: 20101018, end: 20101018
  5. ALBUTEROL [Concomitant]
  6. SYNAGIS [Suspect]
     Dates: start: 20101122, end: 20110321

REACTIONS (2)
  - PNEUMONIA [None]
  - RESPIRATORY SYNCYTIAL VIRUS INFECTION [None]
